FAERS Safety Report 17503943 (Version 1)
Quarter: 2020Q1

REPORT INFORMATION
  Report Type: Spontaneous
  Country: US (occurrence: US)
  Receive Date: 20200305
  Receipt Date: 20200305
  Transmission Date: 20200409
  Serious: No
  Sender: FDA-Public Use
  Company Number: US-ROCHE-2357046

PATIENT
  Sex: Male
  Weight: 65.83 kg

DRUGS (1)
  1. XOLAIR [Suspect]
     Active Substance: OMALIZUMAB
     Indication: CHRONIC SPONTANEOUS URTICARIA
     Dosage: ONGOING : NO
     Route: 065
     Dates: start: 2017

REACTIONS (2)
  - Mechanical urticaria [Not Recovered/Not Resolved]
  - Urticaria [Not Recovered/Not Resolved]
